FAERS Safety Report 14695539 (Version 1)
Quarter: 2018Q1

REPORT INFORMATION
  Report Type: Spontaneous
  Country: US (occurrence: US)
  Receive Date: 20180327
  Receipt Date: 20180327
  Transmission Date: 20180509
  Serious: Yes (Death)
  Sender: FDA-Public Use
  Company Number: None

PATIENT
  Age: 72 Year
  Sex: Male

DRUGS (10)
  1. CARBOPLATIN. [Concomitant]
     Active Substance: CARBOPLATIN
  2. FLUTICASONE. [Concomitant]
     Active Substance: FLUTICASONE
  3. SALMETEROL [Concomitant]
     Active Substance: SALMETEROL
  4. ALLOPURINOL. [Concomitant]
     Active Substance: ALLOPURINOL
  5. ENOXAPARIN [Concomitant]
     Active Substance: ENOXAPARIN
  6. ETOPOSIDE. [Concomitant]
     Active Substance: ETOPOSIDE
  7. CITALOPRAM [Concomitant]
     Active Substance: CITALOPRAM HYDROBROMIDE
  8. IFOSFAMIDE. [Suspect]
     Active Substance: IFOSFAMIDE
     Indication: NEOPLASM MALIGNANT
     Route: 042
     Dates: start: 20171216, end: 20180116
  9. DEXAMETHASONE. [Concomitant]
     Active Substance: DEXAMETHASONE
  10. ATENOLOL. [Concomitant]
     Active Substance: ATENOLOL

REACTIONS (1)
  - Urine output decreased [None]

NARRATIVE: CASE EVENT DATE: 20171217
